FAERS Safety Report 6121884-5 (Version None)
Quarter: 2009Q1

REPORT INFORMATION
  Report Type: 
  Country: None (occurrence: None)
  Receive Date: 20090313
  Receipt Date: 20090310
  Transmission Date: 20090719
  Serious: Yes (Life-Threatening, Hospitalization)
  Sender: FDA-Public Use
  Company Number: 2009-191492-NL

PATIENT
  Age: 64 Year
  Sex: Male

DRUGS (8)
  1. ROCURONIUM BROMIDE [Suspect]
     Indication: ENDOTRACHEAL INTUBATION
     Dosage: 50 MG ONCE INTRAVENOUS (NOS)
     Route: 042
     Dates: start: 20090213, end: 20090213
  2. LIGNOCAINE GEL WITH CHLORHEXIDINE [Suspect]
     Indication: BLADDER CATHETER MANAGEMENT
     Dates: start: 20090213, end: 20090213
  3. PROPOFOL [Concomitant]
  4. MIDAZOLAM HCL [Concomitant]
  5. FENTANYL-25 [Concomitant]
  6. GRANISETRON [Concomitant]
  7. IODINE [Concomitant]
  8. ADRENALINE [Concomitant]

REACTIONS (9)
  - ANAPHYLACTIC REACTION [None]
  - ANURIA [None]
  - BLADDER DISORDER [None]
  - CIRCULATORY COLLAPSE [None]
  - DOCUMENTED HYPERSENSITIVITY TO ADMINISTERED DRUG [None]
  - HYPOXIA [None]
  - RENAL DISORDER [None]
  - ULCER [None]
  - URTICARIA [None]
